FAERS Safety Report 9815797 (Version 1)
Quarter: 2014Q1

REPORT INFORMATION
  Report Type: Spontaneous
  Country: TR (occurrence: TR)
  Receive Date: 20140114
  Receipt Date: 20140114
  Transmission Date: 20141002
  Serious: Yes (Hospitalization)
  Sender: FDA-Public Use
  Company Number: TR-BAYER-2014-000979

PATIENT
  Sex: Male
  Weight: 90 kg

DRUGS (3)
  1. CORASPIN [Suspect]
     Indication: ATRIAL FIBRILLATION
     Dosage: 300 MG, QD
  2. COUMADIN [Interacting]
     Dosage: 100 MG, BID
  3. BELOC [Concomitant]
     Indication: ATRIAL FIBRILLATION

REACTIONS (2)
  - Palpitations [None]
  - Headache [None]
